FAERS Safety Report 10062581 (Version 1)
Quarter: 2014Q1

REPORT INFORMATION
  Report Type: Spontaneous
  Country: US (occurrence: None)
  Receive Date: 20140313
  Receipt Date: 20140313
  Transmission Date: 20141002
  Serious: Yes (Other)
  Sender: FDA-Public Use
  Company Number: 1000051569

PATIENT
  Age: 73 Year
  Sex: Female

DRUGS (4)
  1. DALIRESP [Suspect]
     Indication: CHRONIC OBSTRUCTIVE PULMONARY DISEASE
     Route: 048
     Dates: start: 20131115
  2. ALPRAZOLAM (ALPRAZOLAM)ALPRAZOLAM) [Concomitant]
  3. OXYCODONE (OXYCODONE) (OXYCODONE) [Concomitant]
  4. ISOSORBIDE MONONITRATE (ISOSORBIDE MONONITRATE) [Concomitant]

REACTIONS (2)
  - Headache [None]
  - Diarrhoea [None]
